FAERS Safety Report 20677464 (Version 1)
Quarter: 2022Q2

REPORT INFORMATION
  Report Type: Spontaneous
  Country: JP (occurrence: JP)
  Receive Date: 20220406
  Receipt Date: 20220406
  Transmission Date: 20220721
  Serious: Yes (Hospitalization)
  Sender: FDA-Public Use
  Company Number: JP-JNJFOC-20220319071

PATIENT
  Age: 7 Decade
  Sex: Female

DRUGS (2)
  1. HALOMONTH [Suspect]
     Active Substance: HALOPERIDOL DECANOATE
     Indication: Product used for unknown indication
     Dosage: HALOMONTH
     Route: 030
  2. HALOMONTH [Suspect]
     Active Substance: HALOPERIDOL DECANOATE
     Dosage: HALOMONTH
     Route: 030

REACTIONS (4)
  - Hospitalisation [Unknown]
  - Decreased appetite [Unknown]
  - Restlessness [Unknown]
  - Adverse reaction [Unknown]
